FAERS Safety Report 10040544 (Version 1)
Quarter: 2014Q1

REPORT INFORMATION
  Report Type: Spontaneous
  Country: CA (occurrence: CA)
  Receive Date: 20140327
  Receipt Date: 20140327
  Transmission Date: 20141002
  Serious: Yes (Other)
  Sender: FDA-Public Use
  Company Number: CA-BEH-2014041183

PATIENT
  Age: 53 Year
  Sex: Male
  Weight: 68 kg

DRUGS (5)
  1. PRIVIGEN [Suspect]
     Dosage: 10 GM;20ML/HR FOR 430 MINUTS
     Route: 042
     Dates: start: 20140115, end: 20140115
  2. PRIVIGEN [Suspect]
     Indication: HYPOGAMMAGLOBULINAEMIA
     Dosage: 20 GM; 180 ML/HR
     Route: 042
     Dates: start: 20140115, end: 20140115
  3. PRIVIGEN [Suspect]
     Route: 042
     Dates: start: 20131120
  4. PRIVIGEN [Suspect]
     Route: 042
     Dates: start: 20130925
  5. PRIVIGEN [Suspect]
     Route: 042
     Dates: start: 20130731

REACTIONS (7)
  - Hypertension [Recovered/Resolved]
  - Pyrexia [Recovered/Resolved]
  - Chills [Recovered/Resolved]
  - Tremor [Recovered/Resolved]
  - Malaise [Recovered/Resolved]
  - Drug intolerance [Recovered/Resolved]
  - Chills [Unknown]
